FAERS Safety Report 8859530 (Version 1)
Quarter: 2012Q4

REPORT INFORMATION
  Report Type: 
  Country: US (occurrence: US)
  Receive Date: 20121024
  Receipt Date: 20121024
  Transmission Date: 20130627
  Serious: No
  Sender: FDA-Public Use
  Company Number: US-BAYER-2012-111291

PATIENT
  Age: 79 Year
  Sex: Female
  Weight: 48.98 kg

DRUGS (10)
  1. ALEVE CAPLET/TABLET,MIDOL EXTENDED RELIEF CAPLET [Suspect]
     Indication: ARTHRITIS
     Dosage: 1 DF, BID
     Route: 048
     Dates: start: 20121009, end: 20121011
  2. ANTIHYPERTENSIVES [Concomitant]
  3. ASPIRIN [Concomitant]
     Indication: MYOCARDIAL INFARCT PROPHYLAXIS
  4. HYDROCODONE [Concomitant]
  5. FIBERCON [Concomitant]
  6. MULTIVITAMIN [Concomitant]
  7. CALCIUM [Concomitant]
  8. ASPIRIN [Concomitant]
  9. FLU [Concomitant]
  10. IRREGULAR HEART BEAT MEDICATION [Concomitant]

REACTIONS (1)
  - Arthralgia [None]
